FAERS Safety Report 15537130 (Version 1)
Quarter: 2018Q4

REPORT INFORMATION
  Report Type: Spontaneous
  Country: US (occurrence: US)
  Receive Date: 20181016
  Receipt Date: 20181016
  Transmission Date: 20190205
  Serious: Yes (Hospitalization)
  Sender: FDA-Public Use
  Company Number: None

PATIENT
  Age: 71 Year
  Sex: Female
  Weight: 57.7 kg

DRUGS (2)
  1. DOXIL [Suspect]
     Active Substance: DOXORUBICIN HYDROCHLORIDE
     Dates: end: 20180831
  2. BEVACIZUMAB (RHUMAB VEGF) (704865) [Suspect]
     Active Substance: BEVACIZUMAB
     Dosage: ?          OTHER DOSE:1146 MG, 28 DAYS;?
     Dates: end: 20180913

REACTIONS (1)
  - Subarachnoid haemorrhage [None]

NARRATIVE: CASE EVENT DATE: 20180927
